FAERS Safety Report 7217379-8 (Version None)
Quarter: 2010Q4

REPORT INFORMATION
  Report Type: 
  Country: None (occurrence: None)
  Receive Date: 20101230
  Receipt Date: 20101215
  Transmission Date: 20110411
  Serious: No
  Sender: FDA-Public Use
  Company Number: 2010-01050

PATIENT
  Age: 74 Year
  Sex: Female
  Weight: 53.5244 kg

DRUGS (4)
  1. ZICAM COLD REMEDY ORAL MIST [Suspect]
     Dosage: Q 3 HOURS X 2 DAYS
     Dates: start: 20101214, end: 20101215
  2. NITROFURANTOIN [Concomitant]
  3. VAGIFEM [Concomitant]
  4. WAL-ACT [Concomitant]

REACTIONS (1)
  - AGEUSIA [None]
